FAERS Safety Report 5928083-8 (Version None)
Quarter: 2008Q4

REPORT INFORMATION
  Report Type: 
  Country: None (occurrence: None)
  Receive Date: 20081023
  Receipt Date: 20081013
  Transmission Date: 20090506
  Serious: Yes (Hospitalization)
  Sender: FDA-Public Use
  Company Number: B0541286A

PATIENT
  Age: 57 Year
  Sex: Male

DRUGS (4)
  1. COMBIVIR [Suspect]
     Indication: HIV INFECTION
     Route: 048
     Dates: end: 20080412
  2. PEGASYS [Suspect]
     Indication: HEPATITIS C
     Dosage: 180MCG PER DAY
     Route: 058
     Dates: start: 20080226, end: 20080412
  3. COPEGUS [Suspect]
     Indication: HEPATITIS C
     Route: 048
     Dates: start: 20080226, end: 20080412
  4. REYATAZ [Concomitant]
     Indication: HIV INFECTION
     Route: 048

REACTIONS (5)
  - ASTHENIA [None]
  - BLOOD IRON INCREASED [None]
  - BLOOD LACTATE DEHYDROGENASE INCREASED [None]
  - DYSPNOEA [None]
  - PANCYTOPENIA [None]
